FAERS Safety Report 9913447 (Version 1)
Quarter: 2014Q1

REPORT INFORMATION
  Report Type: Spontaneous
  Country: CN (occurrence: CN)
  Receive Date: 20140220
  Receipt Date: 20140220
  Transmission Date: 20141002
  Serious: Yes (Other)
  Sender: FDA-Public Use
  Company Number: CN-ASTELLAS-2014JP001407

PATIENT
  Sex: Female

DRUGS (1)
  1. PROTOPIC [Suspect]
     Indication: HYPERSENSITIVITY
     Dosage: 0.1 %, UNK
     Route: 061
     Dates: start: 20140212, end: 20140212

REACTIONS (5)
  - Off label use [Recovered/Resolved]
  - Application site pruritus [Recovering/Resolving]
  - Application site pain [Recovering/Resolving]
  - Application site erythema [Recovering/Resolving]
  - Oedema [Recovering/Resolving]
